FAERS Safety Report 25605438 (Version 1)
Quarter: 2025Q3

REPORT INFORMATION
  Report Type: Spontaneous
  Country: US (occurrence: US)
  Receive Date: 20250725
  Receipt Date: 20250725
  Transmission Date: 20251021
  Serious: Yes (Life-Threatening, Hospitalization)
  Sender: DR REDDYS
  Company Number: None

PATIENT
  Age: 44 Year
  Sex: Male

DRUGS (1)
  1. HEPARIN [Suspect]
     Active Substance: HEPARIN SODIUM
     Indication: Pulmonary embolism

REACTIONS (4)
  - Traumatic liver injury [Recovering/Resolving]
  - Hepatic haematoma [Recovering/Resolving]
  - Haemoperitoneum [Recovering/Resolving]
  - Haemodynamic instability [Recovering/Resolving]
